FAERS Safety Report 10028282 (Version 1)
Quarter: 2014Q1

REPORT INFORMATION
  Report Type: Spontaneous
  Country: US (occurrence: US)
  Receive Date: 20140321
  Receipt Date: 20140321
  Transmission Date: 20141002
  Serious: Yes (Hospitalization)
  Sender: FDA-Public Use
  Company Number: US-TEVA-469274USA

PATIENT
  Sex: 0

DRUGS (2)
  1. COPAXONE [Suspect]
     Indication: MULTIPLE SCLEROSIS
     Dates: start: 201401
  2. NSAID^S [Suspect]

REACTIONS (2)
  - Renal failure acute [Unknown]
  - Dehydration [Unknown]
